FAERS Safety Report 9278988 (Version 1)
Quarter: 2013Q2

REPORT INFORMATION
  Report Type: Report from Study
  Country: IL (occurrence: IL)
  Receive Date: 20130508
  Receipt Date: 20130508
  Transmission Date: 20140414
  Serious: Yes (Other)
  Sender: FDA-Public Use
  Company Number: IL-GLAXOSMITHKLINE-B0889011A

PATIENT
  Age: 63 Year
  Sex: Male

DRUGS (1)
  1. RETIGABINE [Suspect]
     Indication: PARTIAL SEIZURES
     Dosage: 200MG THREE TIMES PER DAY
     Route: 048
     Dates: start: 20070809

REACTIONS (2)
  - Eye naevus [Not Recovered/Not Resolved]
  - Conjunctival pigmentation [Not Recovered/Not Resolved]
